FAERS Safety Report 7754079-X (Version None)
Quarter: 2011Q3

REPORT INFORMATION
  Report Type: 
  Country: None (occurrence: None)
  Receive Date: 20110915
  Receipt Date: 20110902
  Transmission Date: 20111222
  Serious: No
  Sender: FDA-Public Use
  Company Number: US-B.I. PHARMACEUTICALS,INC./RIDGEFIELD-2011-BP-21577BP

PATIENT
  Age: 84 Year
  Sex: Male

DRUGS (13)
  1. LASIX [Concomitant]
     Indication: FLUID RETENTION
  2. METOPROLOL TARTRATE [Concomitant]
     Indication: HYPERTENSION
  3. PRADAXA [Suspect]
     Indication: ATRIAL FIBRILLATION
     Dosage: 300 MG
     Route: 048
  4. DOXEPIN [Concomitant]
  5. FISH OIL [Concomitant]
     Indication: SUPPLEMENTATION THERAPY
  6. TRAMEDONE [Concomitant]
     Indication: FIBROMYALGIA
  7. PROPAFENONE HCL [Concomitant]
     Indication: ATRIAL FIBRILLATION
  8. LYRICA [Concomitant]
     Indication: FIBROMYALGIA
  9. GINKGO [Concomitant]
     Indication: SUPPLEMENTATION THERAPY
  10. SYNTHROID [Concomitant]
     Indication: HYPOTHYROIDISM
  11. VITAMIN E [Concomitant]
     Indication: SUPPLEMENTATION THERAPY
  12. OXYBUTON [Concomitant]
     Indication: BLADDER DISORDER
  13. POTASSIUM [Concomitant]
     Indication: SUPPLEMENTATION THERAPY

REACTIONS (1)
  - ALOPECIA [None]
